FAERS Safety Report 8415334-3 (Version None)
Quarter: 2012Q2

REPORT INFORMATION
  Report Type: 
  Country: None (occurrence: None)
  Receive Date: 20120530
  Receipt Date: 20120508
  Transmission Date: 20120825
  Serious: Yes (Death)
  Sender: FDA-Public Use
  Company Number: 2012040130

PATIENT
  Age: 51 Year
  Sex: Male
  Weight: 123 kg

DRUGS (5)
  1. OXYCODONE HCL [Suspect]
  2. MEPERIDINE HCL [Suspect]
  3. DIAZEPAM [Suspect]
  4. CARISOPRODOL (CARISOPRODOL) [Suspect]
  5. MEPROBAMATE [Suspect]

REACTIONS (6)
  - MOUTH HAEMORRHAGE [None]
  - MYDRIASIS [None]
  - TOXICITY TO VARIOUS AGENTS [None]
  - EPISTAXIS [None]
  - PETECHIAE [None]
  - BLISTER [None]
